FAERS Safety Report 18312919 (Version 1)
Quarter: 2020Q3

REPORT INFORMATION
  Report Type: Spontaneous
  Country: RU (occurrence: RU)
  Receive Date: 20200925
  Receipt Date: 20200925
  Transmission Date: 20201103
  Serious: Yes (Other)
  Sender: FDA-Public Use
  Company Number: NVSC2020RU257364

PATIENT
  Age: 52 Year
  Sex: Female
  Weight: 158 kg

DRUGS (7)
  1. SORBIFER DURULES [Concomitant]
     Active Substance: FERROUS SULFATE
     Indication: IRON DEFICIENCY ANAEMIA
     Dosage: 100 MG, BID
     Route: 048
     Dates: start: 20200910, end: 20200918
  2. DICLOFENAC [Concomitant]
     Active Substance: DICLOFENAC
     Indication: HYPERTHERMIA
     Dosage: 3 ML, QD
     Route: 030
     Dates: start: 20200910, end: 20200918
  3. BISOPROLOL [Concomitant]
     Active Substance: BISOPROLOL
     Indication: HYPERTENSION
     Dosage: 2.5 MG, QD
     Route: 048
     Dates: start: 20200828, end: 20200918
  4. FAMOTIDINE. [Concomitant]
     Active Substance: FAMOTIDINE
     Indication: GASTRITIS EROSIVE
     Dosage: 20 MG
     Route: 048
     Dates: start: 20200828, end: 20200918
  5. RIVAROXABAN [Concomitant]
     Active Substance: RIVAROXABAN
     Indication: EMBOLISM VENOUS
     Dosage: 20 MG
     Route: 048
     Dates: start: 20200828, end: 20200918
  6. IVABRADINE [Concomitant]
     Active Substance: IVABRADINE
     Indication: MYOCARDIAL ISCHAEMIA
     Dosage: 5 MG, TID
     Route: 048
     Dates: start: 20200828, end: 20200918
  7. EDICIN [Suspect]
     Active Substance: VANCOMYCIN HYDROCHLORIDE
     Indication: STAPHYLOCOCCAL BACTERAEMIA
     Dosage: 1 G, BID
     Route: 031
     Dates: start: 20200918, end: 20200918

REACTIONS (5)
  - Red man syndrome [Recovering/Resolving]
  - Dyspnoea [Recovering/Resolving]
  - Lip swelling [Recovering/Resolving]
  - Pruritus [Recovering/Resolving]
  - Erythema [Recovering/Resolving]

NARRATIVE: CASE EVENT DATE: 20200918
